FAERS Safety Report 8363601-4 (Version None)
Quarter: 2012Q2

REPORT INFORMATION
  Report Type: 
  Country: None (occurrence: None)
  Receive Date: 20120516
  Receipt Date: 20120504
  Transmission Date: 20120825
  Serious: Yes (Death)
  Sender: FDA-Public Use
  Company Number: FR-PFIZER INC-2012109681

PATIENT
  Age: 58 Year
  Sex: Female
  Weight: 48 kg

DRUGS (8)
  1. ZOFRAN [Concomitant]
     Indication: VOMITING
  2. MORPHINE [Concomitant]
     Indication: PAIN
     Dosage: UNK
     Route: 042
  3. SUNITINIB MALATE [Suspect]
     Dosage: 80 MG, UNK
  4. AEQUASYAL [Concomitant]
     Indication: DRY MOUTH
     Dosage: 0.4 PER 24H
     Route: 062
     Dates: start: 20111208
  5. AUGMENTIN [Concomitant]
     Indication: INFECTION
  6. LEVOFLOXACIN [Concomitant]
     Indication: INFECTION
  7. SUNITINIB MALATE [Suspect]
     Indication: METASTATIC RENAL CELL CARCINOMA
     Dosage: 50 MG, UNK
     Route: 048
     Dates: start: 20110519
  8. ZOFRAN [Concomitant]
     Indication: NAUSEA
     Dosage: 12 MG, 1X/DAY
     Route: 048
     Dates: start: 20111208

REACTIONS (1)
  - PROCEDURAL PAIN [None]
